FAERS Safety Report 25528164 (Version 1)
Quarter: 2025Q3

REPORT INFORMATION
  Report Type: Spontaneous
  Country: EU (occurrence: EU)
  Receive Date: 20250708
  Receipt Date: 20250708
  Transmission Date: 20251021
  Serious: Yes (Other)
  Sender: RANBAXY
  Company Number: EU-SUN PHARMACEUTICAL INDUSTRIES LTD-2025RR-515621

PATIENT
  Age: 63 Year
  Sex: Male

DRUGS (9)
  1. GEMCITABINE [Suspect]
     Active Substance: GEMCITABINE
     Indication: Peripheral T-cell lymphoma unspecified recurrent
     Route: 065
     Dates: start: 202006, end: 202012
  2. CISPLATIN [Suspect]
     Active Substance: CISPLATIN
     Indication: Peripheral T-cell lymphoma unspecified recurrent
     Route: 065
     Dates: start: 202006, end: 202012
  3. VINCRISTINE [Suspect]
     Active Substance: VINCRISTINE
     Indication: Peripheral T-cell lymphoma unspecified refractory
     Route: 065
     Dates: start: 201812, end: 201904
  4. METHOTREXATE [Suspect]
     Active Substance: METHOTREXATE
     Indication: Acute graft versus host disease
     Route: 065
  5. DOXORUBICIN [Suspect]
     Active Substance: DOXORUBICIN
     Indication: Peripheral T-cell lymphoma unspecified recurrent
     Route: 065
     Dates: start: 201812, end: 201904
  6. PREDNISONE [Suspect]
     Active Substance: PREDNISONE
     Indication: Peripheral T-cell lymphoma unspecified recurrent
     Route: 065
     Dates: start: 201812, end: 201904
  7. CYCLOPHOSPHAMIDE [Suspect]
     Active Substance: CYCLOPHOSPHAMIDE
     Indication: Peripheral T-cell lymphoma unspecified recurrent
     Route: 065
     Dates: start: 201812, end: 201904
  8. CYCLOSPORINE [Suspect]
     Active Substance: CYCLOSPORINE
     Indication: Acute graft versus host disease
     Route: 065
  9. ETOPOSIDE [Suspect]
     Active Substance: ETOPOSIDE
     Indication: Peripheral T-cell lymphoma unspecified recurrent
     Route: 065
     Dates: start: 201812, end: 201904

REACTIONS (3)
  - Therapeutic product effect incomplete [Unknown]
  - Neoplasm progression [Recovering/Resolving]
  - Sepsis [Recovering/Resolving]
